FAERS Safety Report 4680129-3 (Version None)
Quarter: 2005Q2

REPORT INFORMATION
  Report Type: 
  Country: None (occurrence: None)
  Receive Date: 20050602
  Receipt Date: 20050304
  Transmission Date: 20051028
  Serious: Yes (Hospitalization)
  Sender: FDA-Public Use
  Company Number: US-ABBOTT-05P-163-0293015-00

PATIENT
  Sex: Male
  Weight: 137.27 kg

DRUGS (12)
  1. HUMIRA [Suspect]
     Indication: RHEUMATOID ARTHRITIS
     Route: 058
     Dates: start: 20050131, end: 20050214
  2. PAROXETINE HYDROCHLORIDE [Concomitant]
     Indication: DEPRESSION
     Dates: start: 20000101
  3. ZOCOR [Concomitant]
     Indication: BLOOD CHOLESTEROL INCREASED
     Dates: start: 20000101
  4. FENTANYL [Concomitant]
     Indication: PAIN
     Dates: start: 19980101
  5. GLIBENCLAMIDE [Concomitant]
     Indication: DIABETES MELLITUS
     Dates: start: 19960101
  6. LEVOTHYROXINE SODIUM [Concomitant]
     Indication: HYPOTHYROIDISM
     Dates: start: 20010101
  7. METFORMIN [Concomitant]
     Indication: DIABETES MELLITUS
     Dates: start: 19990101
  8. GABAPENTIN [Concomitant]
     Indication: PAIN
     Dates: start: 19850101
  9. METHOTREXATE [Concomitant]
     Indication: RHEUMATOID ARTHRITIS
     Route: 048
     Dates: start: 20010416
  10. FOLIC ACID [Concomitant]
     Indication: PROPHYLAXIS AGAINST GASTROINTESTINAL ULCER
     Dates: start: 20040916
  11. HYDROXYCHLOROQUINE PHOSPHATE [Concomitant]
     Indication: RHEUMATOID ARTHRITIS
     Dates: start: 20040209
  12. VICODIN [Concomitant]
     Indication: PAIN
     Dates: start: 20041027

REACTIONS (1)
  - CELLULITIS [None]
